FAERS Safety Report 10463790 (Version 1)
Quarter: 2014Q3

REPORT INFORMATION
  Report Type: Report from Study
  Country: US (occurrence: US)
  Receive Date: 20140919
  Receipt Date: 20140919
  Transmission Date: 20150326
  Serious: Yes (Death)
  Sender: FDA-Public Use
  Company Number: PHEH2014US018674

PATIENT
  Age: 21 Year
  Sex: Female
  Weight: 35.37 kg

DRUGS (1)
  1. TOBI PODHALER [Suspect]
     Active Substance: TOBRAMYCIN
     Indication: CYSTIC FIBROSIS
     Dosage: 112 MG, BID
     Route: 055
     Dates: start: 201402, end: 201402

REACTIONS (1)
  - Death [Fatal]

NARRATIVE: CASE EVENT DATE: 20140407
